FAERS Safety Report 6667739-9 (Version None)
Quarter: 2010Q1

REPORT INFORMATION
  Report Type: 
  Country: None (occurrence: None)
  Receive Date: 20100331
  Receipt Date: 20100319
  Transmission Date: 20100710
  Serious: Yes (Death, Other)
  Sender: FDA-Public Use
  Company Number: 2007-04252

PATIENT
  Age: 68 Year
  Sex: Female
  Weight: 44 kg

DRUGS (7)
  1. VELCADE [Suspect]
     Indication: MULTIPLE MYELOMA
     Dosage: 1.65 MG, INTRAVENOUS; INTRAVENOUS
     Route: 042
     Dates: start: 20070604, end: 20080605
  2. VELCADE [Suspect]
     Indication: MULTIPLE MYELOMA
     Dosage: 1.65 MG, INTRAVENOUS; INTRAVENOUS
     Route: 042
     Dates: start: 20080619, end: 20080619
  3. VELCADE [Suspect]
     Indication: MULTIPLE MYELOMA
     Dosage: 1.65 MG, INTRAVENOUS; INTRAVENOUS
     Route: 042
     Dates: start: 20080710, end: 20080710
  4. VELCADE [Suspect]
     Indication: MULTIPLE MYELOMA
     Dosage: 1.65 MG, INTRAVENOUS; INTRAVENOUS
     Route: 042
     Dates: start: 20070927
  5. PREDNISOLONE [Concomitant]
  6. ALENDRONATE SODIUM (BONALON) (ALENDRONATE SODIUM) [Concomitant]
  7. ITRACONAZOLE [Concomitant]

REACTIONS (3)
  - BONE MARROW FAILURE [None]
  - DISEASE PROGRESSION [None]
  - MULTIPLE MYELOMA [None]
